FAERS Safety Report 19863018 (Version 2)
Quarter: 2021Q4

REPORT INFORMATION
  Report Type: Other
  Country: US (occurrence: US)
  Receive Date: 20210921
  Receipt Date: 20211221
  Transmission Date: 20220303
  Serious: No
  Sender: FDA-Public Use
  Company Number: US-ACORDA-ACO_168165_2021

PATIENT
  Sex: Female

DRUGS (5)
  1. INBRIJA [Suspect]
     Active Substance: LEVODOPA
     Indication: On and off phenomenon
     Dosage: 84 MILLIGRAM, AS NEEDED, NOT TO EXCEED 5 DOSES PER DAY
     Dates: start: 20210115
  2. INBRIJA [Suspect]
     Active Substance: LEVODOPA
     Indication: Parkinson^s disease
  3. GOCOVRI [Suspect]
     Active Substance: AMANTADINE
     Indication: Dyskinesia
     Dosage: 137 MILLIGRAM, QD, HS
     Route: 048
     Dates: start: 20200514
  4. CARBIDOPA\LEVODOPA [Suspect]
     Active Substance: CARBIDOPA\LEVODOPA
     Indication: Product used for unknown indication
     Dosage: UNK
     Route: 065
  5. RYTARY [Concomitant]
     Active Substance: CARBIDOPA\LEVODOPA
     Indication: Product used for unknown indication
     Dosage: 2 PILLS 4X DAILY
     Route: 065

REACTIONS (10)
  - Product residue present [Unknown]
  - Parkinson^s disease [Not Recovered/Not Resolved]
  - Therapeutic product effect delayed [Unknown]
  - Abdominal pain upper [Unknown]
  - Hot flush [Unknown]
  - Device defective [Unknown]
  - Product colour issue [Unknown]
  - Device use issue [Unknown]
  - Nausea [Not Recovered/Not Resolved]
  - Drug ineffective [Unknown]
